FAERS Safety Report 10215960 (Version 2)
Quarter: 2014Q3

REPORT INFORMATION
  Report Type: Spontaneous
  Country: US (occurrence: None)
  Receive Date: 20140602
  Receipt Date: 20140730
  Transmission Date: 20150326
  Serious: Yes (Other)
  Sender: FDA-Public Use
  Company Number: 2014-US-006527

PATIENT
  Age: 36 Year
  Sex: Female

DRUGS (2)
  1. ARMOUR THYROID (THYROID) [Concomitant]
  2. XYREM [Suspect]
     Active Substance: SODIUM OXYBATE
     Indication: NARCOLEPSY
     Dates: start: 200904

REACTIONS (7)
  - Maternal exposure during pregnancy [None]
  - Diverticulum intestinal [None]
  - Colitis [None]
  - Oesophageal polyp [None]
  - Stillbirth [None]
  - Abortion spontaneous [None]
  - Methylenetetrahydrofolate reductase deficiency [None]

NARRATIVE: CASE EVENT DATE: 2011
